FAERS Safety Report 6580145-0 (Version None)
Quarter: 2010Q1

REPORT INFORMATION
  Report Type: 
  Country: None (occurrence: None)
  Receive Date: 20100212
  Receipt Date: 20100203
  Transmission Date: 20100710
  Serious: Yes (Life-Threatening, Hospitalization)
  Sender: FDA-Public Use
  Company Number: US-WATSON-2010-00742

PATIENT
  Sex: Female
  Weight: 81.633 kg

DRUGS (2)
  1. NECON 1/35-28 (WATSON LABORATORIES) [Suspect]
     Indication: MENSTRUAL CYCLE MANAGEMENT
     Dosage: 1 TABLET DAILY
     Route: 048
     Dates: start: 20090401, end: 20091026
  2. ZESTRIL [Concomitant]
     Indication: BLOOD PRESSURE
     Dosage: UNK
     Route: 065
     Dates: start: 20091001

REACTIONS (40)
  - ABASIA [None]
  - ABDOMINAL PAIN [None]
  - ABDOMINAL PAIN UPPER [None]
  - ANAEMIA [None]
  - AORTIC THROMBOSIS [None]
  - ATELECTASIS [None]
  - BLOOD GLUCOSE INCREASED [None]
  - CARDIOVASCULAR DISORDER [None]
  - CHEST PAIN [None]
  - CONDITION AGGRAVATED [None]
  - DECREASED APPETITE [None]
  - DEGENERATION OF UTERINE FIBROID [None]
  - DIARRHOEA [None]
  - DRUG INEFFECTIVE FOR UNAPPROVED INDICATION [None]
  - ERYTHEMA [None]
  - FOOT DEFORMITY [None]
  - GASTROENTERITIS VIRAL [None]
  - HEPATIC ARTERY EMBOLISM [None]
  - HYPERCOAGULATION [None]
  - HYPERHIDROSIS [None]
  - HYPOAESTHESIA [None]
  - INTESTINAL ISCHAEMIA [None]
  - MALAISE [None]
  - MESENTERIC ARTERY EMBOLISM [None]
  - NAUSEA [None]
  - OEDEMA PERIPHERAL [None]
  - PAIN IN EXTREMITY [None]
  - PALLOR [None]
  - PERIPHERAL EMBOLISM [None]
  - PERITONEAL DISORDER [None]
  - PLATELET COUNT INCREASED [None]
  - SKIN ULCER [None]
  - SPLENIC EMBOLISM [None]
  - SPLENIC INFARCTION [None]
  - SPLENIC VEIN THROMBOSIS [None]
  - THROMBOCYTOSIS [None]
  - UTERINE ENLARGEMENT [None]
  - VAGINAL HAEMORRHAGE [None]
  - VOMITING [None]
  - WEIGHT DECREASED [None]
